FAERS Safety Report 13338740 (Version 2)
Quarter: 2017Q1

REPORT INFORMATION
  Report Type: Spontaneous
  Country: US (occurrence: US)
  Receive Date: 20170315
  Receipt Date: 20170324
  Transmission Date: 20170428
  Serious: Yes (Other)
  Sender: FDA-Public Use
  Company Number: US-SAOL THERAPEUTICS-2017SAO00462

PATIENT
  Sex: Male

DRUGS (1)
  1. BACLOFEN. [Suspect]
     Active Substance: BACLOFEN
     Indication: MUSCLE SPASTICITY
     Dosage: 1851.7 ?G, \DAY
     Route: 037

REACTIONS (9)
  - Dysarthria [Unknown]
  - Fall [Unknown]
  - Pain [Unknown]
  - Hypotonia [Unknown]
  - Implant site scar [Unknown]
  - Therapeutic response decreased [Unknown]
  - Mental status changes [Unknown]
  - Asthenia [Unknown]
  - Device infusion issue [Unknown]
